FAERS Safety Report 25776606 (Version 1)
Quarter: 2025Q3

REPORT INFORMATION
  Report Type: Spontaneous
  Country: US (occurrence: US)
  Receive Date: 20250909
  Receipt Date: 20250909
  Transmission Date: 20251021
  Serious: No
  Sender: DOMPE FARMACEUTICI
  Company Number: US-FARMAPROD-202503-0777

PATIENT
  Sex: Female

DRUGS (4)
  1. OXERVATE [Suspect]
     Active Substance: CENEGERMIN-BKBJ
     Indication: Neurotrophic keratopathy
     Route: 047
     Dates: start: 20250220
  2. OXERVATE [Suspect]
     Active Substance: CENEGERMIN-BKBJ
  3. OXERVATE [Suspect]
     Active Substance: CENEGERMIN-BKBJ
  4. OXERVATE [Suspect]
     Active Substance: CENEGERMIN-BKBJ

REACTIONS (9)
  - Eye pain [Not Recovered/Not Resolved]
  - Eye irritation [Unknown]
  - Lacrimation increased [Recovered/Resolved]
  - Vision blurred [Recovering/Resolving]
  - Rhinorrhoea [Not Recovered/Not Resolved]
  - Dry eye [Not Recovered/Not Resolved]
  - Eyelid margin crusting [Recovering/Resolving]
  - Hordeolum [Recovering/Resolving]
  - Ocular hyperaemia [Unknown]
